FAERS Safety Report 21366248 (Version 1)
Quarter: 2022Q3

REPORT INFORMATION
  Report Type: Spontaneous
  Country: US (occurrence: US)
  Receive Date: 20220922
  Receipt Date: 20220922
  Transmission Date: 20221027
  Serious: No
  Sender: FDA-Public Use
  Company Number: US-PURDUE PHARMA-USA-2022-0291336

PATIENT
  Age: 58 Year
  Sex: Male

DRUGS (2)
  1. BUTRANS [Suspect]
     Active Substance: BUPRENORPHINE
     Indication: Pain
     Dosage: 20 MCG/HR, WEEKLY
     Route: 062
     Dates: start: 202110, end: 202112
  2. BUPRENORPHINE [Suspect]
     Active Substance: BUPRENORPHINE
     Indication: Pain
     Dosage: 20 MCG/HR, WEEKLY (1 PATCH EVERY 7 DAYS)
     Route: 062
     Dates: end: 202112

REACTIONS (6)
  - Application site scar [Not Recovered/Not Resolved]
  - Application site burn [Unknown]
  - Application site scab [Unknown]
  - Application site erythema [Unknown]
  - Hypertension [Unknown]
  - Skin irritation [Unknown]

NARRATIVE: CASE EVENT DATE: 20211001
